FAERS Safety Report 7484217-8 (Version None)
Quarter: 2011Q2

REPORT INFORMATION
  Report Type: 
  Country: None (occurrence: None)
  Receive Date: 20110517
  Receipt Date: 20110504
  Transmission Date: 20111010
  Serious: Yes (Death, Hospitalization)
  Sender: FDA-Public Use
  Company Number: PHHY2011JP38268

PATIENT
  Age: 77 Year
  Sex: Female

DRUGS (10)
  1. DIAPHENYLSULFON [Concomitant]
  2. CYCLOSPORINE [Suspect]
     Dosage: 150 MG, UNK
  3. PREDNISOLONE [Suspect]
     Dosage: 10 MG, UNK
  4. CORTICOSTEROIDS [Concomitant]
  5. PREDNISOLONE [Suspect]
     Dosage: 15 MG, UNK
  6. CYCLOSPORINE [Suspect]
     Dosage: 250 MG, UNK
  7. PREDNISOLONE [Suspect]
     Dosage: 15 MG, UNK
  8. INFLIXIMAB [Concomitant]
  9. CYCLOSPORINE [Suspect]
     Indication: PYODERMA GANGRENOSUM
     Dosage: 200 MG, QD
  10. PREDNISOLONE [Suspect]
     Indication: PYODERMA GANGRENOSUM
     Dosage: 20 MG, UNK

REACTIONS (9)
  - ERYTHEMA [None]
  - METASTASES TO LIVER [None]
  - INFLAMMATORY BOWEL DISEASE [None]
  - SKIN INDURATION [None]
  - BREAST CANCER [None]
  - SKIN ULCER [None]
  - PYODERMA GANGRENOSUM [None]
  - METASTASES TO BONE [None]
  - SKIN NECROSIS [None]
